FAERS Safety Report 5740715-6 (Version None)
Quarter: 2008Q2

REPORT INFORMATION
  Report Type: 
  Country: None (occurrence: None)
  Receive Date: 20080516
  Receipt Date: 20080505
  Transmission Date: 20081010
  Serious: Yes (Hospitalization)
  Sender: FDA-Public Use
  Company Number: FR-PFIZER INC-2008039463

PATIENT
  Sex: Female

DRUGS (18)
  1. ZYVOX [Suspect]
     Indication: LUNG DISORDER
     Route: 042
     Dates: start: 20071029, end: 20071108
  2. TRIFLUCAN [Suspect]
     Indication: INFECTION
     Route: 048
     Dates: start: 20071029, end: 20071108
  3. PIPERACILLIN AND TAZOBACTAM [Suspect]
     Indication: LUNG DISORDER
     Route: 042
     Dates: start: 20071024, end: 20071029
  4. ACETYLSALICYLATE LYSINE [Suspect]
     Indication: PROPHYLAXIS
     Route: 048
     Dates: start: 20070924, end: 20071212
  5. LEVETIRACETAM [Suspect]
     Indication: PROPHYLAXIS
     Route: 048
     Dates: start: 20070925, end: 20071214
  6. TEICOPLANIN [Suspect]
     Indication: LUNG DISORDER
     Route: 042
     Dates: start: 20071024, end: 20071029
  7. PRISTINAMYCIN [Suspect]
     Route: 048
     Dates: start: 20071029, end: 20071108
  8. AMIKACIN [Suspect]
     Route: 030
     Dates: start: 20071024, end: 20071029
  9. PAROXETINE HCL [Concomitant]
  10. ZOLPIDEM TARTRATE [Concomitant]
  11. SUFENTANIL CITRATE [Concomitant]
     Dates: start: 20070924, end: 20070924
  12. FENTANYL CITRATE [Concomitant]
     Dates: start: 20070924, end: 20071009
  13. PROPOFOL [Concomitant]
     Dates: start: 20070924, end: 20070924
  14. INSULIN GLARGINE [Concomitant]
  15. ENOXAPARIN SODIUM [Concomitant]
     Route: 058
  16. URAPIDIL [Concomitant]
     Route: 048
     Dates: start: 20071107
  17. AMIODARONE HYDROCHLORIDE [Concomitant]
     Dates: start: 20071024
  18. ESOMEPRAZOLE MAGNESIUM [Concomitant]
     Dates: start: 20071212

REACTIONS (1)
  - PANCYTOPENIA [None]
